FAERS Safety Report 8210684-8 (Version None)
Quarter: 2012Q1

REPORT INFORMATION
  Report Type: 
  Country: None (occurrence: None)
  Receive Date: 20120314
  Receipt Date: 20120305
  Transmission Date: 20120608
  Serious: Yes (Hospitalization)
  Sender: FDA-Public Use
  Company Number: US-ASTRAZENECA-2012SE15471

PATIENT
  Age: 65 Year
  Sex: Female

DRUGS (7)
  1. SEROQUEL [Suspect]
     Indication: ANXIETY
     Route: 048
  2. SEROQUEL [Suspect]
     Indication: HALLUCINATION, AUDITORY
     Route: 048
  3. SEROQUEL [Suspect]
     Indication: BIPOLAR DISORDER
     Route: 048
  4. SEROQUEL [Suspect]
     Indication: SCHIZOPHRENIA
     Route: 048
  5. NEXIUM [Suspect]
     Indication: GASTROOESOPHAGEAL REFLUX DISEASE
     Route: 048
  6. SEROQUEL [Suspect]
     Indication: PANIC ATTACK
     Route: 048
  7. SEROQUEL [Suspect]
     Indication: DEPRESSION
     Route: 048

REACTIONS (4)
  - PNEUMOTHORAX [None]
  - PNEUMONIA [None]
  - OFF LABEL USE [None]
  - CHRONIC OBSTRUCTIVE PULMONARY DISEASE [None]
